FAERS Safety Report 7457789-7 (Version None)
Quarter: 2011Q2

REPORT INFORMATION
  Report Type: 
  Country: None (occurrence: None)
  Receive Date: 20110504
  Receipt Date: 20110421
  Transmission Date: 20111010
  Serious: Yes (Death, Hospitalization)
  Sender: FDA-Public Use
  Company Number: DE-CUBIST-2011S1000251

PATIENT
  Age: 69 Year
  Sex: Male

DRUGS (2)
  1. DAPTOMYCIN [Suspect]
  2. CEFUROXIME SODIUM [Suspect]
     Indication: PRODUCT USED FOR UNKNOWN INDICATION
     Dates: start: 20101206, end: 20101206

REACTIONS (4)
  - CIRCULATORY COLLAPSE [None]
  - LOW CARDIAC OUTPUT SYNDROME [None]
  - RENAL FAILURE [None]
  - HEPATIC ENZYME INCREASED [None]
